FAERS Safety Report 16311181 (Version 1)
Quarter: 2019Q2

REPORT INFORMATION
  Report Type: Spontaneous
  Country: US (occurrence: US)
  Receive Date: 20190514
  Receipt Date: 20190514
  Transmission Date: 20190711
  Serious: No
  Sender: FDA-Public Use
  Company Number: US-MAYNE PHARMA-2018MYN001514

PATIENT

DRUGS (2)
  1. ESTRACE [Concomitant]
     Active Substance: ESTRADIOL
     Indication: PRODUCT USED FOR UNKNOWN INDICATION
     Dosage: 1 G AS DIRECTED
     Route: 067
  2. LIOTHYRONINE [Suspect]
     Active Substance: LIOTHYRONINE
     Indication: THYROID HORMONES DECREASED
     Dosage: 6.25 MCG QAM, 12.5 MCG QHS
     Route: 048
     Dates: start: 20181109

REACTIONS (5)
  - Muscular weakness [Unknown]
  - Insomnia [Unknown]
  - Product substitution issue [Unknown]
  - Dysphonia [Unknown]
  - Intentional product use issue [Unknown]

NARRATIVE: CASE EVENT DATE: 20181105
